FAERS Safety Report 10101088 (Version 1)
Quarter: 2014Q2

REPORT INFORMATION
  Report Type: Spontaneous
  Country: US (occurrence: US)
  Receive Date: 20140424
  Receipt Date: 20140424
  Transmission Date: 20141212
  Serious: No
  Sender: FDA-Public Use
  Company Number: US-BIOGENIDEC-2014BI038158

PATIENT
  Sex: Female

DRUGS (1)
  1. AVONEX [Suspect]
     Indication: MULTIPLE SCLEROSIS
     Route: 030
     Dates: start: 20140322

REACTIONS (5)
  - Visual impairment [Unknown]
  - Stress [Unknown]
  - Influenza like illness [Unknown]
  - Vomiting [Unknown]
  - Fatigue [Unknown]
